FAERS Safety Report 19804976 (Version 1)
Quarter: 2021Q3

REPORT INFORMATION
  Report Type: Spontaneous
  Country: US (occurrence: US)
  Receive Date: 20210908
  Receipt Date: 20210908
  Transmission Date: 20211014
  Serious: Yes (Other)
  Sender: FDA-Public Use
  Company Number: US-009507513-2107USA007847

PATIENT
  Sex: Female

DRUGS (6)
  1. ASPIRINE [Concomitant]
     Active Substance: ASPIRIN
     Indication: THROMBOSIS PROPHYLAXIS
     Dosage: 81 MILLIGRAM
     Dates: start: 2006, end: 2014
  2. INFLUENZA VACCINE INACT [Concomitant]
     Active Substance: INFLUENZA VIRUS VACCINE
     Dosage: 0.5 MILLILITER
     Route: 030
     Dates: start: 20131001
  3. COMBIVENT [Concomitant]
     Active Substance: ALBUTEROL SULFATE\IPRATROPIUM BROMIDE
     Indication: OXYGEN SATURATION DECREASED
     Dosage: 18 MICROGRAM INHALER
     Dates: start: 2009
  4. ZOSTAVAX [Suspect]
     Active Substance: VARICELLA-ZOSTER VIRUS STRAIN OKA/MERCK LIVE ANTIGEN
     Indication: PROPHYLAXIS
     Dosage: .65 MILLILITER
     Route: 058
     Dates: start: 20131001
  5. VITAMINS NOS [Concomitant]
     Active Substance: VITAMINS
     Indication: HYPOVITAMINOSIS
     Dosage: UNK
     Dates: start: 2007, end: 2015
  6. STERILE DILUENT (WATER) [Suspect]
     Active Substance: WATER
     Dosage: UNK
     Route: 058
     Dates: start: 20131001

REACTIONS (10)
  - Lower respiratory tract infection [Unknown]
  - Rhinitis allergic [Unknown]
  - Muscle spasms [Unknown]
  - Insomnia [Unknown]
  - Skin infection [Unknown]
  - Hyperlipidaemia [Unknown]
  - Gastrooesophageal reflux disease [Unknown]
  - Anxiety [Unknown]
  - Depression [Unknown]
  - Herpes zoster [Unknown]

NARRATIVE: CASE EVENT DATE: 20150806
